FAERS Safety Report 10023167 (Version 3)
Quarter: 2014Q2

REPORT INFORMATION
  Report Type: Spontaneous
  Country: US (occurrence: US)
  Receive Date: 20140320
  Receipt Date: 20140512
  Transmission Date: 20141212
  Serious: Yes (Other)
  Sender: FDA-Public Use
  Company Number: US-PFIZER INC-2014075025

PATIENT
  Age: 68 Year
  Sex: Female

DRUGS (4)
  1. GLUCOTROL XL [Suspect]
     Indication: DIABETES MELLITUS
     Dosage: 10 MG, 1X/DAY
     Dates: start: 2004
  2. GLUCOTROL XL [Suspect]
     Dosage: 5 MG, 1X/DAY
  3. GLUCOTROL XL [Suspect]
     Dosage: UNK, 1X/DAY
  4. JANUVIA [Concomitant]
     Indication: DIABETES MELLITUS
     Dosage: 50 MG, UNK
     Dates: start: 2012

REACTIONS (4)
  - Retinal detachment [Unknown]
  - Blindness unilateral [Unknown]
  - Eye disorder [Unknown]
  - Colour blindness acquired [Unknown]
